FAERS Safety Report 21765906 (Version 1)
Quarter: 2022Q4

REPORT INFORMATION
  Report Type: Spontaneous
  Country: US (occurrence: None)
  Receive Date: 20221221
  Receipt Date: 20221221
  Transmission Date: 20230113
  Serious: Yes (Other)
  Sender: FDA-Public Use
  Company Number: None

PATIENT
  Age: 51 Year
  Sex: Male
  Weight: 90 kg

DRUGS (4)
  1. CHANTIX [Suspect]
     Active Substance: VARENICLINE TARTRATE
     Indication: Smoking cessation therapy
     Dosage: OTHER QUANTITY : 1 CAPSULE(S);?FREQUENCY : TWICE A DAY;?
     Route: 048
     Dates: start: 20221103, end: 20221206
  2. VITAMIN D3 [Concomitant]
     Active Substance: CHOLECALCIFEROL
  3. multivitamin for men 50 plus [Concomitant]
  4. VITAMIN B COMPLEX [Concomitant]
     Active Substance: CYANOCOBALAMIN\DEXPANTHENOL\NIACINAMIDE\PYRIDOXINE HYDROCHLORIDE\RIBOFLAVIN 5^-PHOSPHATE SODIUM\THIA

REACTIONS (13)
  - Dizziness [None]
  - Constipation [None]
  - Tinnitus [None]
  - Respiration abnormal [None]
  - Skin irritation [None]
  - Eczema [None]
  - Rhinorrhoea [None]
  - Hypersensitivity [None]
  - Aggression [None]
  - Suicide attempt [None]
  - Physical assault [None]
  - Amnesia [None]
  - Imprisonment [None]

NARRATIVE: CASE EVENT DATE: 20221205
